FAERS Safety Report 19517011 (Version 5)
Quarter: 2021Q3

REPORT INFORMATION
  Report Type: Report from Study
  Country: KR (occurrence: KR)
  Receive Date: 20210711
  Receipt Date: 20210803
  Transmission Date: 20211014
  Serious: Yes (Hospitalization)
  Sender: FDA-Public Use
  Company Number: KR-CELLTRION INC.-2021KR007726

PATIENT

DRUGS (32)
  1. LEUCOVORIN. [Suspect]
     Active Substance: LEUCOVORIN
     Dosage: 296 MG (200MG/M2 ADMINISTRATION)
     Route: 042
     Dates: start: 20210622
  2. TYLENOL 8HR [Concomitant]
     Active Substance: ACETAMINOPHEN
     Indication: PROPHYLAXIS
     Dosage: 1300 MG, EVERY PREMEDICATION OF CHEMOTHERAPY
     Route: 048
     Dates: start: 20210408
  3. HERZUMA [Suspect]
     Active Substance: TRASTUZUMAB-PKRB
     Indication: BILE DUCT CANCER
     Dosage: 321 MG
     Route: 042
     Dates: start: 20210408
  4. OXALIPLATIN. [Suspect]
     Active Substance: OXALIPLATIN
     Dosage: 96.2 MG (65/M2 (C5D1 HERZUMA + FOLFOX ON 22JUN)
  5. 5 FU BOLUS [Suspect]
     Active Substance: FLUOROURACIL
     Dosage: 2812 MG
     Route: 042
     Dates: start: 20210622
  6. 5FU INFUSIONAL [Suspect]
     Active Substance: FLUOROURACIL
     Dosage: 2,812MG, 1900MG/M2
     Route: 042
     Dates: start: 20210622
  7. MEROPEN [MEROPENEM] [Concomitant]
     Active Substance: MEROPENEM
     Indication: PROPHYLAXIS
     Dosage: 1000 MG, TID
     Route: 042
     Dates: start: 20210329, end: 20210411
  8. LEUCOVORIN. [Suspect]
     Active Substance: LEUCOVORIN
     Dosage: 300 MG
     Route: 042
     Dates: start: 20210527
  9. LEUCOVORIN. [Suspect]
     Active Substance: LEUCOVORIN
     Dosage: 200 MG/M2 (296 MG) C5D1 HERZUMA + FOLFOX ON 22JUN
  10. PHENIRAMINE [Concomitant]
     Active Substance: PHENIRAMINE
     Indication: PROPHYLAXIS
     Dosage: 4 MG, EVERY PREMEDICATION OF CHEMOTHERAPY
     Route: 042
     Dates: start: 20210408
  11. HERZUMA [Suspect]
     Active Substance: TRASTUZUMAB-PKRB
     Dosage: 214 MG (4 MG/KG) (C5D1 HERZUMA + FOLFOX ON 22JUN)
  12. 5 FU BOLUS [Suspect]
     Active Substance: FLUOROURACIL
     Indication: BILE DUCT CANCER
     Dosage: 600 MG
     Route: 042
     Dates: start: 20210408
  13. 5 FU BOLUS [Suspect]
     Active Substance: FLUOROURACIL
     Dosage: 1900 MG/M2 (2,812 MG) C5D1 HERZUMA + FOLFOX ON 22JUN
     Dates: start: 20210622
  14. TRIDOL [Concomitant]
     Active Substance: TRAMADOL HYDROCHLORIDE
     Indication: BACK PAIN
     Dosage: 50 MG, PRN
     Route: 048
     Dates: start: 20210409
  15. NEURONTIN [Concomitant]
     Active Substance: GABAPENTIN
     Indication: PERIPHERAL SENSORY NEUROPATHY
     Dosage: 300 MG, TID
     Route: 048
     Dates: start: 20210621
  16. OXALIPLATIN. [Suspect]
     Active Substance: OXALIPLATIN
     Dosage: 96.2 MG (65/M2  ADMINISTRATION)
     Route: 042
     Dates: start: 20210622
  17. 5FU INFUSIONAL [Suspect]
     Active Substance: FLUOROURACIL
     Indication: BILE DUCT CANCER
     Dosage: 3600 MG
     Route: 042
     Dates: start: 20210408
  18. 5FU INFUSIONAL [Suspect]
     Active Substance: FLUOROURACIL
     Dosage: 2850 MG
     Route: 042
     Dates: start: 20210527
  19. CEFTRIAXONE. [Concomitant]
     Active Substance: CEFTRIAXONE
     Indication: PYREXIA
     Dosage: 2 G, QD
     Route: 042
     Dates: start: 20210530, end: 20210530
  20. MEGESTROL ACETATE. [Concomitant]
     Active Substance: MEGESTROL ACETATE
     Indication: PROPHYLAXIS
     Dosage: 20 ML, PRN
     Route: 048
     Dates: start: 20210304
  21. OXALIPLATIN. [Suspect]
     Active Substance: OXALIPLATIN
     Dosage: 97.5 MG
     Route: 042
     Dates: start: 20210527
  22. PHOSTEN INJ (AMP) [Concomitant]
     Indication: PROPHYLAXIS
     Dosage: 20 ML, ONCE
     Route: 042
     Dates: start: 20210530, end: 20210530
  23. YUHAN DEXAMETHASONE DISODIUM PHOSPHATE [Concomitant]
     Indication: PROPHYLAXIS
     Dosage: 12 MG, EVERY MEDICATION OF CHEMOTHERAPY
     Route: 042
     Dates: start: 20210408
  24. ALOXI [Concomitant]
     Active Substance: PALONOSETRON HYDROCHLORIDE
     Indication: PROPHYLAXIS
     Dosage: 0.25 MG, EVERY PREMEDICATION OF CHEMOTHERAPY
     Route: 042
     Dates: start: 20210408
  25. NEURONTIN [Concomitant]
     Active Substance: GABAPENTIN
     Indication: PERIPHERAL SENSORY NEUROPATHY
     Dosage: 100 MG, TID
     Route: 048
     Dates: start: 20210409
  26. CEFTRIAXONE. [Concomitant]
     Active Substance: CEFTRIAXONE
     Indication: BACTERAEMIA
     Dosage: 2 G, QD
     Dates: start: 20210530
  27. PACKED RBC [Concomitant]
     Indication: ANAEMIA
     Dosage: 800 ML, ONCE
     Route: 042
     Dates: start: 20210407, end: 20210407
  28. HERZUMA [Suspect]
     Active Substance: TRASTUZUMAB-PKRB
     Dosage: 214 MG
     Route: 042
     Dates: start: 20210527
  29. HERZUMA [Suspect]
     Active Substance: TRASTUZUMAB-PKRB
     Dosage: 214 MG (4MG/KG ADMINISTRATION)
     Route: 042
     Dates: start: 20210622
  30. OXALIPLATIN. [Suspect]
     Active Substance: OXALIPLATIN
     Indication: BILE DUCT CANCER
     Dosage: 127.5 MG
     Route: 042
     Dates: start: 20210408
  31. LEUCOVORIN. [Suspect]
     Active Substance: LEUCOVORIN
     Indication: BILE DUCT CANCER
     Dosage: 300 MG
     Route: 042
     Dates: start: 20210408
  32. GRASIN PREFILLD SYRINGE [Concomitant]
     Indication: NEUTROPENIA
     Dosage: 150 MICROGRAM, ONCE
     Route: 058
     Dates: start: 20210512, end: 20210512

REACTIONS (3)
  - Bacteraemia [Recovered/Resolved]
  - Off label use [Unknown]
  - Pneumonia [Recovered/Resolved]

NARRATIVE: CASE EVENT DATE: 20210602
